FAERS Safety Report 13391324 (Version 1)
Quarter: 2017Q1

REPORT INFORMATION
  Report Type: Spontaneous
  Country: US (occurrence: US)
  Receive Date: 20170331
  Receipt Date: 20170331
  Transmission Date: 20170429
  Serious: Yes (Other)
  Sender: FDA-Public Use
  Company Number: US-ELI_LILLY_AND_COMPANY-US201607012592

PATIENT

DRUGS (3)
  1. CYMBALTA [Suspect]
     Active Substance: DULOXETINE HYDROCHLORIDE
     Indication: PRODUCT USED FOR UNKNOWN INDICATION
     Dosage: UNK, UNKNOWN
     Route: 065
  2. CYMBALTA [Suspect]
     Active Substance: DULOXETINE HYDROCHLORIDE
     Dosage: 300 MG, QD
     Route: 065
  3. CYMBALTA [Suspect]
     Active Substance: DULOXETINE HYDROCHLORIDE
     Dosage: 30 MG, QD
     Route: 065

REACTIONS (50)
  - Drug withdrawal syndrome [Unknown]
  - Hypoaesthesia [Unknown]
  - Vision blurred [Unknown]
  - Night sweats [Unknown]
  - Fatigue [Unknown]
  - Paraesthesia [Unknown]
  - Dizziness [Unknown]
  - Depressed mood [Unknown]
  - Sneezing [Unknown]
  - Sensory disturbance [Unknown]
  - Affect lability [Unknown]
  - Restlessness [Unknown]
  - Hypoacusis [Unknown]
  - Dysphonia [Unknown]
  - Diarrhoea [Unknown]
  - Tachyphrenia [Unknown]
  - Neck pain [Unknown]
  - Nasal congestion [Unknown]
  - Back pain [Unknown]
  - Vertigo [Unknown]
  - Irritability [Unknown]
  - Headache [Unknown]
  - Hyperhidrosis [Unknown]
  - Feeling of body temperature change [Unknown]
  - Heart rate increased [Unknown]
  - Myalgia [Unknown]
  - Anxiety [Unknown]
  - Insomnia [Unknown]
  - Hypomania [Unknown]
  - Weight increased [Unknown]
  - Thirst [Unknown]
  - Confusional state [Unknown]
  - Asthenia [Unknown]
  - Anger [Unknown]
  - Tonsillar hypertrophy [Unknown]
  - Hypertension [Unknown]
  - Arthralgia [Unknown]
  - Pain in extremity [Unknown]
  - Initial insomnia [Unknown]
  - Nervousness [Unknown]
  - Memory impairment [Unknown]
  - Rhinorrhoea [Unknown]
  - Tinnitus [Unknown]
  - Suicidal ideation [Unknown]
  - Depression [Unknown]
  - Tooth disorder [Unknown]
  - Dry skin [Unknown]
  - Libido decreased [Unknown]
  - Dysphoria [Unknown]
  - Nausea [Unknown]
